FAERS Safety Report 12157726 (Version 1)
Quarter: 2016Q1

REPORT INFORMATION
  Report Type: Spontaneous
  Country: US (occurrence: None)
  Receive Date: 20160307
  Receipt Date: 20160307
  Transmission Date: 20160526
  Serious: No
  Sender: FDA-Public Use
  Company Number: None

PATIENT
  Age: 42 Year
  Sex: Male

DRUGS (1)
  1. MYCOPHENOLATE [Suspect]
     Active Substance: MYCOPHENOLIC ACID
     Indication: RENAL TRANSPLANT
     Dosage: 9/2013 TO 1/1/2016  AND STARTING BACK ON
     Route: 048
     Dates: start: 201309, end: 20160101

REACTIONS (2)
  - Therapy cessation [None]
  - Economic problem [None]

NARRATIVE: CASE EVENT DATE: 20160101
